FAERS Safety Report 8088675-X (Version None)
Quarter: 2012Q1

REPORT INFORMATION
  Report Type: 
  Country: None (occurrence: None)
  Receive Date: 20120128
  Receipt Date: 20110410
  Transmission Date: 20120608
  Serious: Yes (Other)
  Sender: FDA-Public Use
  Company Number: US-ABBOTT-11P-163-0718633-00

PATIENT
  Age: 65 Year
  Sex: Male

DRUGS (5)
  1. UNKNOWN DRUG [Concomitant]
  2. UNKNOWN DRUG [Concomitant]
     Indication: PRODUCT USED FOR UNKNOWN INDICATION
  3. HUMIRA [Suspect]
     Indication: PSORIASIS
     Dates: start: 20101201
  4. UNKNOWN BLOOD THINNER [Concomitant]
     Indication: PRODUCT USED FOR UNKNOWN INDICATION
  5. UNKNOWN DIABETES TYPE 2 DRUG [Concomitant]
     Indication: TYPE 2 DIABETES MELLITUS

REACTIONS (3)
  - FALL [None]
  - ANKLE FRACTURE [None]
  - SKIN CANCER [None]
